FAERS Safety Report 23797307 (Version 2)
Quarter: 2024Q2

REPORT INFORMATION
  Report Type: Spontaneous
  Country: US (occurrence: None)
  Receive Date: 20240430
  Receipt Date: 20240628
  Transmission Date: 20240716
  Serious: Yes (Hospitalization)
  Sender: FDA-Public Use
  Company Number: 2024A095817

PATIENT
  Age: 18974 Day
  Sex: Female

DRUGS (2)
  1. BYDUREON BCISE [Suspect]
     Active Substance: EXENATIDE
     Dates: start: 202403
  2. NITROGLYCERIN [Concomitant]
     Active Substance: NITROGLYCERIN

REACTIONS (11)
  - Paraesthesia [Not Recovered/Not Resolved]
  - Hypoaesthesia [Not Recovered/Not Resolved]
  - Angina pectoris [Recovering/Resolving]
  - Cardiovascular disorder [Recovering/Resolving]
  - Skin mass [Not Recovered/Not Resolved]
  - Nausea [Not Recovered/Not Resolved]
  - Abdominal pain [Not Recovered/Not Resolved]
  - Blood glucose decreased [Recovered/Resolved]
  - Injection site rash [Unknown]
  - Injection site pruritus [Unknown]
  - Device issue [Unknown]

NARRATIVE: CASE EVENT DATE: 20240301
